FAERS Safety Report 4646499-7 (Version None)
Quarter: 2005Q2

REPORT INFORMATION
  Report Type: 
  Country: None (occurrence: None)
  Receive Date: 20050427
  Receipt Date: 20040604
  Transmission Date: 20051028
  Serious: No
  Sender: FDA-Public Use
  Company Number: US-GLAXOSMITHKLINE-A0513440A

PATIENT
  Sex: Female

DRUGS (2)
  1. FLOVENT [Suspect]
     Indication: ASTHMA
     Dosage: 880MCG TWICE PER DAY
     Route: 055
  2. SEREVENT [Concomitant]

REACTIONS (3)
  - BACK PAIN [None]
  - ILL-DEFINED DISORDER [None]
  - WHEEZING [None]
